FAERS Safety Report 20919498 (Version 1)
Quarter: 2022Q2

REPORT INFORMATION
  Report Type: Spontaneous
  Country: US (occurrence: None)
  Receive Date: 20220602
  Receipt Date: 20220602
  Transmission Date: 20220721
  Serious: Yes (Other)
  Sender: FDA-Public Use
  Company Number: None

PATIENT
  Age: 51 Year
  Sex: Female

DRUGS (1)
  1. NATAMYCIN [Suspect]
     Active Substance: NATAMYCIN

REACTIONS (4)
  - Peripheral swelling [None]
  - Flatulence [None]
  - Abdominal pain upper [None]
  - Nonspecific reaction [None]

NARRATIVE: CASE EVENT DATE: 20220518
